FAERS Safety Report 7208765-0 (Version None)
Quarter: 2011Q1

REPORT INFORMATION
  Report Type: 
  Country: None (occurrence: None)
  Receive Date: 20110104
  Receipt Date: 20101230
  Transmission Date: 20110831
  Serious: Yes (Death, Other)
  Sender: FDA-Public Use
  Company Number: US-PFIZER INC-2010114149

PATIENT
  Sex: Female

DRUGS (2)
  1. SUTENT [Suspect]
     Indication: HEPATIC NEOPLASM MALIGNANT
  2. SUTENT [Suspect]
     Indication: METASTATIC RENAL CELL CARCINOMA
     Dosage: 37.5 MG, 1X/DAY, 4 WEEKS ON + 2 OFF
     Route: 048
     Dates: start: 20100812

REACTIONS (4)
  - PALMAR-PLANTAR ERYTHRODYSAESTHESIA SYNDROME [None]
  - DISEASE PROGRESSION [None]
  - HYPERKERATOSIS [None]
  - METASTATIC RENAL CELL CARCINOMA [None]
